FAERS Safety Report 16904244 (Version 1)
Quarter: 2019Q4

REPORT INFORMATION
  Report Type: Spontaneous
  Country: US (occurrence: US)
  Receive Date: 20191009
  Receipt Date: 20191009
  Transmission Date: 20200122
  Serious: Yes (Disabling)
  Sender: FDA-Public Use
  Company Number: None

PATIENT
  Age: 16 Year
  Sex: Male
  Weight: 60.3 kg

DRUGS (3)
  1. RANITIDINE. [Suspect]
     Active Substance: RANITIDINE
     Indication: GASTROOESOPHAGEAL REFLUX DISEASE
     Dosage: ?          QUANTITY:8 TABLET(S);?
     Route: 048
     Dates: start: 20180215, end: 20191009
  2. FOCALIN XR [Concomitant]
     Active Substance: DEXMETHYLPHENIDATE HYDROCHLORIDE
  3. DAILY TEEN GUMMY MULTIVITAMIN [Concomitant]

REACTIONS (4)
  - Malaise [None]
  - Lethargy [None]
  - Nausea [None]
  - Suspected product contamination [None]

NARRATIVE: CASE EVENT DATE: 20191008
